FAERS Safety Report 10136460 (Version 1)
Quarter: 2014Q2

REPORT INFORMATION
  Report Type: Spontaneous
  Country: US (occurrence: US)
  Receive Date: 20140429
  Receipt Date: 20140429
  Transmission Date: 20141212
  Serious: No
  Sender: FDA-Public Use
  Company Number: US-BAYER-2014-062598

PATIENT
  Age: 48 Year
  Sex: Female
  Weight: 52.15 kg

DRUGS (3)
  1. ALEVE CAPLET [Suspect]
     Indication: ANALGESIC THERAPY
     Dosage: 1-2 DF, PRN
     Route: 048
  2. MELATONIN [Concomitant]
  3. ST. JOSEPH ASPIRIN ADULT LOW DOSE [Concomitant]

REACTIONS (2)
  - Drug ineffective [None]
  - Extra dose administered [None]
